APPROVED DRUG PRODUCT: VYFEMLA
Active Ingredient: ETHINYL ESTRADIOL; NORETHINDRONE
Strength: 0.035MG;0.4MG
Dosage Form/Route: TABLET;ORAL-28
Application: A201886 | Product #001 | TE Code: AB
Applicant: LUPIN LTD
Approved: Sep 26, 2013 | RLD: No | RS: No | Type: RX